FAERS Safety Report 6219281-7 (Version None)
Quarter: 2009Q2

REPORT INFORMATION
  Report Type: 
  Country: None (occurrence: None)
  Receive Date: 20090609
  Receipt Date: 20090526
  Transmission Date: 20091009
  Serious: Yes (Hospitalization)
  Sender: FDA-Public Use
  Company Number: FR-ELI_LILLY_AND_COMPANY-FR200905005600

PATIENT
  Sex: Male

DRUGS (4)
  1. ALIMTA [Suspect]
     Indication: LUNG NEOPLASM MALIGNANT
     Dosage: 500 MG/M2, DAY 1 EVERY 21 DAYS
     Route: 042
  2. FOLIC ACID [Concomitant]
     Indication: SUPPLEMENTATION THERAPY
  3. VITAMIN B-12 [Concomitant]
     Indication: SUPPLEMENTATION THERAPY
  4. CORTICOSTEROIDS [Concomitant]
     Indication: PROPHYLAXIS

REACTIONS (1)
  - CEREBROVASCULAR ACCIDENT [None]
